FAERS Safety Report 14274448 (Version 1)
Quarter: 2017Q4

REPORT INFORMATION
  Report Type: Report from Study
  Country: None (occurrence: RO)
  Receive Date: 20171211
  Receipt Date: 20171211
  Transmission Date: 20180321
  Serious: Yes (Hospitalization, Other)
  Sender: FDA-Public Use
  Company Number: RO-ABBVIE-17K-135-1836348-00

PATIENT
  Age: 56 Year
  Sex: Male

DRUGS (6)
  1. DUODOPA [Suspect]
     Active Substance: CARBIDOPA\LEVODOPA
     Indication: PARKINSON^S DISEASE
     Dosage: 16/24H: MD= 7, RCR= 2,7, ED=2
     Route: 050
     Dates: start: 20160125
  2. RIVOTRIL [Concomitant]
     Active Substance: CLONAZEPAM
     Indication: PRODUCT USED FOR UNKNOWN INDICATION
     Route: 048
  3. BROMAZEPAM [Concomitant]
     Active Substance: BROMAZEPAM
     Indication: PRODUCT USED FOR UNKNOWN INDICATION
     Route: 048
  4. DUODOPA [Suspect]
     Active Substance: CARBIDOPA\LEVODOPA
     Dosage: DM=7.00,DC=2.90,ED=2.00
     Route: 050
  5. ANXIAR [Concomitant]
     Active Substance: LORAZEPAM
     Indication: PRODUCT USED FOR UNKNOWN INDICATION
  6. SELEGOS [Concomitant]
     Indication: PARKINSON^S DISEASE
     Route: 048

REACTIONS (10)
  - Psychotic disorder due to a general medical condition [Recovering/Resolving]
  - Headache [Recovering/Resolving]
  - Joint dislocation [Unknown]
  - Cerebral atrophy [Not Recovered/Not Resolved]
  - Osteoarthritis [Not Recovered/Not Resolved]
  - On and off phenomenon [Recovering/Resolving]
  - Aggression [Not Recovered/Not Resolved]
  - Urethral adenoma [Unknown]
  - Carotid arteriosclerosis [Not Recovered/Not Resolved]
  - Wrong technique in device usage process [Recovered/Resolved]

NARRATIVE: CASE EVENT DATE: 201612
